FAERS Safety Report 21403098 (Version 2)
Quarter: 2023Q1

REPORT INFORMATION
  Report Type: Spontaneous
  Country: CH (occurrence: CH)
  Receive Date: 20221003
  Receipt Date: 20230110
  Transmission Date: 20230418
  Serious: Yes (Other)
  Sender: FDA-Public Use
  Company Number: None

PATIENT
  Age: 43 Year
  Sex: Female

DRUGS (6)
  1. ENTRESTO [Suspect]
     Active Substance: SACUBITRIL\VALSARTAN
     Indication: Cardiac failure
     Dosage: START BETWEEN 07 SEP 2022 AND 08 SEP 2022
     Route: 048
     Dates: start: 20220907
  2. BISOPROLOL [Suspect]
     Active Substance: BISOPROLOL
     Indication: Cardiac failure
     Dosage: START BETWEEN 07 SEP 2022 AND 08 SEP 2022
     Route: 048
     Dates: start: 20220907
  3. TORSEMIDE [Suspect]
     Active Substance: TORSEMIDE
     Indication: Product used for unknown indication
     Dosage: UNK
     Route: 065
     Dates: start: 20220908
  4. ASPIRIN [Suspect]
     Active Substance: ASPIRIN
     Indication: Cardiac failure
     Dosage: UNK (START BETWEEN 07 SEP 2022 AND 08 SEP 2022)
     Route: 048
     Dates: start: 20220908
  5. ALDACTONE [Suspect]
     Active Substance: SPIRONOLACTONE
     Indication: Cardiac failure
     Dosage: START BETWEEN 07 SEP 2022 AND 08 SEP 2022
     Route: 048
     Dates: start: 20220908, end: 20220911
  6. DAPAGLIFLOZIN [Suspect]
     Active Substance: DAPAGLIFLOZIN
     Indication: Cardiac failure
     Dosage: START BETWEEN 07 SEP 2022 AND 08 SEP 2022
     Route: 048
     Dates: start: 20220908, end: 20220911

REACTIONS (2)
  - Pruritus [Recovered/Resolved]
  - Rash [Not Recovered/Not Resolved]

NARRATIVE: CASE EVENT DATE: 20220908
